FAERS Safety Report 7721529-4 (Version None)
Quarter: 2011Q3

REPORT INFORMATION
  Report Type: 
  Country: None (occurrence: None)
  Receive Date: 20110831
  Receipt Date: 20110823
  Transmission Date: 20111222
  Serious: Yes (Life-Threatening)
  Sender: FDA-Public Use
  Company Number: FR-EISAI INC-E3810-04891-SPO-FR

PATIENT
  Sex: Female

DRUGS (9)
  1. ACETAMINOPHEN [Concomitant]
     Route: 048
     Dates: start: 20110324
  2. NITRODERM [Concomitant]
     Indication: ANGINA PECTORIS
     Route: 062
  3. AMITRIPTYLINE HCL [Concomitant]
     Route: 048
     Dates: start: 20110324
  4. AMLODIPINE [Concomitant]
     Dosage: 1 DOSE
     Route: 048
     Dates: start: 20110330, end: 20110502
  5. OXAZEPAM [Concomitant]
     Route: 048
     Dates: start: 20110324
  6. RABEPRAZOLE SODIUM [Suspect]
     Indication: GASTROOESOPHAGEAL REFLUX DISEASE
     Route: 048
     Dates: start: 20110324, end: 20110428
  7. IRBESARTAN AND HYDROCHLOROTHIAZIDE [Suspect]
     Indication: HYPERTENSION
     Dosage: 1 DOSE
     Route: 048
     Dates: start: 20110324
  8. LOVENOX [Concomitant]
     Dosage: 1 DOSE
     Route: 058
     Dates: start: 20110314
  9. SECTRAL [Concomitant]
     Indication: HYPERTENSION
     Route: 048

REACTIONS (2)
  - HYPONATRAEMIA [None]
  - HYPOKALAEMIA [None]
